FAERS Safety Report 7961600-5 (Version None)
Quarter: 2011Q4

REPORT INFORMATION
  Report Type: 
  Country: None (occurrence: None)
  Receive Date: 20111207
  Receipt Date: 20111128
  Transmission Date: 20120403
  Serious: Yes (Other)
  Sender: FDA-Public Use
  Company Number: US-SANOFI-AVENTIS-2011SA079273

PATIENT
  Age: 60 Year
  Sex: Female

DRUGS (1)
  1. INSULIN GLARGINE [Suspect]
     Indication: INSULIN-REQUIRING TYPE 2 DIABETES MELLITUS
     Route: 065

REACTIONS (5)
  - ABSCESS [None]
  - SKIN LESION [None]
  - ATYPICAL MYCOBACTERIAL INFECTION [None]
  - EXCESSIVE GRANULATION TISSUE [None]
  - NODULE [None]
